FAERS Safety Report 17632751 (Version 2)
Quarter: 2020Q3

REPORT INFORMATION
  Report Type: Spontaneous
  Country: US (occurrence: US)
  Receive Date: 20200406
  Receipt Date: 20200803
  Transmission Date: 20201102
  Serious: Yes (Other)
  Sender: FDA-Public Use
  Company Number: US-SHIRE-US202012322

PATIENT
  Sex: Female
  Weight: 45 kg

DRUGS (3)
  1. XELJANZ [Suspect]
     Active Substance: TOFACITINIB CITRATE
     Indication: PRODUCT USED FOR UNKNOWN INDICATION
     Route: 065
  2. ASACOL [Concomitant]
     Active Substance: MESALAMINE
     Indication: PRODUCT USED FOR UNKNOWN INDICATION
  3. LIALDA [Suspect]
     Active Substance: MESALAMINE
     Indication: PRODUCT USED FOR UNKNOWN INDICATION
     Route: 065

REACTIONS (8)
  - Crohn^s disease [Unknown]
  - Drug intolerance [Unknown]
  - Neovascular age-related macular degeneration [Unknown]
  - Pruritus [Unknown]
  - Rash [Unknown]
  - Somnolence [Unknown]
  - Central vision loss [Unknown]
  - Hypoacusis [Unknown]
